FAERS Safety Report 17529869 (Version 1)
Quarter: 2020Q1

REPORT INFORMATION
  Report Type: Spontaneous
  Country: FR (occurrence: FR)
  Receive Date: 20200311
  Receipt Date: 20200311
  Transmission Date: 20200409
  Serious: Yes (Other)
  Sender: FDA-Public Use
  Company Number: FR-NAPPMUNDI-GBR-2020-0075573

PATIENT
  Sex: Male

DRUGS (4)
  1. CODOLIPRANE [Concomitant]
     Active Substance: ACETAMINOPHEN\CODEINE PHOSPHATE
     Dosage: UNK
     Dates: start: 202001
  2. OXYNORMORO [Suspect]
     Active Substance: OXYCODONE HYDROCHLORIDE
     Indication: PAIN
     Dosage: 6 DF, DAILY [STRENGTH 5 MG] (2-2-2)
     Route: 065
     Dates: start: 202001, end: 202002
  3. NEURONTIN [Concomitant]
     Active Substance: GABAPENTIN
     Dosage: UNK
     Dates: start: 202001
  4. KETUM [Concomitant]
     Active Substance: KETOPROFEN
     Dosage: 100 MG, UNK
     Dates: start: 202001

REACTIONS (5)
  - Hypersomnia [Recovered/Resolved]
  - Drug withdrawal syndrome [Recovered/Resolved]
  - Delusion [Recovered/Resolved]
  - Dysuria [Recovered/Resolved]
  - Hyperhidrosis [Recovered/Resolved]

NARRATIVE: CASE EVENT DATE: 202001
